FAERS Safety Report 19634265 (Version 1)
Quarter: 2021Q3

REPORT INFORMATION
  Report Type: Other
  Country: US (occurrence: US)
  Receive Date: 20210730
  Receipt Date: 20210730
  Transmission Date: 20211014
  Serious: No
  Sender: FDA-Public Use
  Company Number: US-ROCHE-2874637

PATIENT
  Age: 36 Year
  Sex: Male
  Weight: 72.64 kg

DRUGS (3)
  1. OCREVUS [Suspect]
     Active Substance: OCRELIZUMAB
     Indication: RELAPSING MULTIPLE SCLEROSIS
  2. OCREVUS [Suspect]
     Active Substance: OCRELIZUMAB
     Indication: MULTIPLE SCLEROSIS
     Dosage: DATE OF TREATMENT:02/OCT/2018, 16/OCT/2018,  12/SEP/2019, 04/APR/2019, 08/NOV/2019,  05/MAY/2020, 09
     Route: 042
     Dates: start: 2018
  3. MITOTANE [Concomitant]
     Active Substance: MITOTANE
     Indication: ADRENAL GLAND CANCER
     Dates: start: 2017

REACTIONS (2)
  - Coronavirus infection [Recovered/Resolved]
  - Herpes zoster [Recovered/Resolved]

NARRATIVE: CASE EVENT DATE: 2020
